FAERS Safety Report 10574282 (Version 1)
Quarter: 2014Q4

REPORT INFORMATION
  Report Type: Report from Study
  Country: KR (occurrence: KR)
  Receive Date: 20141110
  Receipt Date: 20141110
  Transmission Date: 20150529
  Serious: Yes (Death)
  Sender: FDA-Public Use
  Company Number: KR-ASTRAZENECA-2014SE84190

PATIENT

DRUGS (3)
  1. LIDOCAINE. [Suspect]
     Active Substance: LIDOCAINE
     Indication: STATUS EPILEPTICUS
     Dosage: 1-2 MG/KG BOLUS
  2. LIDOCAINE. [Suspect]
     Active Substance: LIDOCAINE
     Indication: STATUS EPILEPTICUS
     Dosage: 3.5 MG PLUS/,MINUS 1.3 MG/KG PER HOUR
  3. MIDAZOLAM [Concomitant]
     Active Substance: MIDAZOLAM\MIDAZOLAM HYDROCHLORIDE
     Indication: STATUS EPILEPTICUS
     Dosage: 11.3 PLUS/MINUS 5.2 MCG/KG/MIN
     Route: 042

REACTIONS (2)
  - Urine output decreased [Fatal]
  - Acute kidney injury [Fatal]
